FAERS Safety Report 4746174-4 (Version None)
Quarter: 2005Q3

REPORT INFORMATION
  Report Type: 
  Country: None (occurrence: None)
  Receive Date: 20050816
  Receipt Date: 20050801
  Transmission Date: 20060218
  Serious: Yes (Hospitalization, Other)
  Sender: FDA-Public Use
  Company Number: USA-2003-0012156

PATIENT
  Age: 42 Year
  Sex: Male

DRUGS (16)
  1. OXYCONTIN [Suspect]
     Indication: PAIN
     Dosage: SEE IMAGE
     Dates: end: 20020301
  2. OXYCODONE HCL [Concomitant]
  3. MS CONTIN [Concomitant]
  4. MS CONTIN [Concomitant]
  5. MORPHINE SULFATE [Concomitant]
  6. XANAFLAX [Concomitant]
  7. FLEXERIL [Concomitant]
  8. TYLENOL [Concomitant]
  9. WELLBUTRIN [Concomitant]
  10. ALBUTEROL [Concomitant]
  11. ATROVENT [Concomitant]
  12. PRILOSEC [Concomitant]
  13. TRAZODONE (TRAZODONE) [Concomitant]
  14. AMOXIL [Concomitant]
  15. ZOLOFT [Concomitant]
  16. CELEXA [Concomitant]

REACTIONS (54)
  - ABDOMINAL PAIN [None]
  - ANOREXIA [None]
  - ANXIETY [None]
  - ARTHRALGIA [None]
  - ASTHMA [None]
  - AXILLARY PAIN [None]
  - BACK PAIN [None]
  - BLOOD PRESSURE SYSTOLIC INCREASED [None]
  - BLOOD URINE [None]
  - BLOOD URINE PRESENT [None]
  - BUTTOCK PAIN [None]
  - CHEST PAIN [None]
  - CONDITION AGGRAVATED [None]
  - CONSTIPATION [None]
  - DEPRESSION [None]
  - DIARRHOEA [None]
  - DRUG DEPENDENCE [None]
  - DRUG WITHDRAWAL SYNDROME [None]
  - DYSPNOEA [None]
  - EAR INFECTION [None]
  - EARLY SATIETY [None]
  - FALL [None]
  - FATIGUE [None]
  - FLANK PAIN [None]
  - GAIT DISTURBANCE [None]
  - HAEMATOCHEZIA [None]
  - HEADACHE [None]
  - HEMIPARESIS [None]
  - HYPERHIDROSIS [None]
  - HYPOKINESIA [None]
  - INADEQUATE ANALGESIA [None]
  - INSOMNIA [None]
  - IRRITABLE BOWEL SYNDROME [None]
  - JOINT SPRAIN [None]
  - JOINT SWELLING [None]
  - LIMB INJURY [None]
  - LOSS OF CONSCIOUSNESS [None]
  - MENTAL STATUS CHANGES [None]
  - MUSCLE SPASMS [None]
  - NASAL CONGESTION [None]
  - NAUSEA [None]
  - NERVOUSNESS [None]
  - OEDEMA PERIPHERAL [None]
  - PAIN [None]
  - PAIN IN EXTREMITY [None]
  - PAIN IN JAW [None]
  - PHARYNGITIS [None]
  - POLLAKIURIA [None]
  - RESPIRATORY RATE INCREASED [None]
  - SHOULDER PAIN [None]
  - SLEEP DISORDER [None]
  - SYNCOPE [None]
  - TENDERNESS [None]
  - VERTIGO [None]
